FAERS Safety Report 5671996-5 (Version None)
Quarter: 2008Q2

REPORT INFORMATION
  Report Type: 
  Country: None (occurrence: None)
  Receive Date: 20080219
  Receipt Date: 20071112
  Transmission Date: 20081010
  Serious: No
  Sender: FDA-Public Use
  Company Number: TPA2007A02333

PATIENT
  Age: 80 Year
  Sex: Female
  Weight: 58.9676 kg

DRUGS (1)
  1. ROZEREM [Suspect]
     Indication: INSOMNIA
     Dosage: 8 MG, HS, PER ORAL
     Route: 048
     Dates: start: 20071001, end: 20071001

REACTIONS (1)
  - DRUG INEFFECTIVE [None]
